FAERS Safety Report 7920552-4 (Version None)
Quarter: 2011Q4

REPORT INFORMATION
  Report Type: 
  Country: None (occurrence: None)
  Receive Date: 20111117
  Receipt Date: 20110814
  Transmission Date: 20120403
  Serious: No
  Sender: FDA-Public Use
  Company Number: US-BAYER-2011-076672

PATIENT
  Sex: Female

DRUGS (2)
  1. ALEVE (CAPLET) [Suspect]
     Indication: MUSCLE SPASMS
  2. ALEVE (CAPLET) [Suspect]
     Indication: PAIN

REACTIONS (2)
  - MUSCLE SPASMS [None]
  - PAIN [None]
